FAERS Safety Report 9605599 (Version 2)
Quarter: 2013Q4

REPORT INFORMATION
  Report Type: Spontaneous
  Country: US (occurrence: US)
  Receive Date: 20131008
  Receipt Date: 20131028
  Transmission Date: 20140711
  Serious: No
  Sender: FDA-Public Use
  Company Number: US-BAYER-2013-120948

PATIENT
  Age: 64 Year
  Sex: Female

DRUGS (2)
  1. CLIMARA [Suspect]
     Indication: HYSTERECTOMY
     Dosage: UNK
     Route: 062
     Dates: start: 1981
  2. CLIMARA [Suspect]
     Indication: HORMONE REPLACEMENT THERAPY

REACTIONS (7)
  - Application site pain [Not Recovered/Not Resolved]
  - Application site rash [Not Recovered/Not Resolved]
  - Hot flush [Not Recovered/Not Resolved]
  - Vulvovaginal dryness [Not Recovered/Not Resolved]
  - Hyperhidrosis [Not Recovered/Not Resolved]
  - Burning sensation [Not Recovered/Not Resolved]
  - Application site reaction [None]
